FAERS Safety Report 15661174 (Version 5)
Quarter: 2019Q1

REPORT INFORMATION
  Report Type: Spontaneous
  Country: DE (occurrence: DE)
  Receive Date: 20181127
  Receipt Date: 20190306
  Transmission Date: 20190417
  Serious: Yes (Hospitalization, Other)
  Sender: FDA-Public Use
  Company Number: DE-PFIZER INC-2018482250

PATIENT
  Age: 70 Year
  Sex: Female

DRUGS (13)
  1. LYRICA [Suspect]
     Active Substance: PREGABALIN
     Dosage: UNK (IN THE EVENING)
     Dates: start: 20180820
  2. CANDECOR COMP [Concomitant]
     Active Substance: CANDESARTAN CILEXETIL\HYDROCHLOROTHIAZIDE
     Dosage: 1 DF, 1X/DAY (STRENGTH: 16/12.5 MG)
  3. CALCIGEN D [Concomitant]
     Active Substance: CALCIUM CARBONATE\CHOLECALCIFEROL
     Dosage: 1 DF (600 MG/ 400 IU), 2X/DAY
  4. CELECOXIB ACTAVIS [Concomitant]
     Active Substance: CELECOXIB
     Dosage: 200 MG, 2X/DAY
  5. LERCANIDIPIN OMNIAPHARM [Concomitant]
     Dosage: 10 MG, 1X/DAY
  6. SALBUHALER [Concomitant]
     Dosage: UNK
  7. TORASEMID ABZ [Concomitant]
     Dosage: 5 MG, 2X/DAY
  8. NITRANGIN [Concomitant]
     Dosage: UNK
  9. L-THYROXIN HENNING [Concomitant]
     Active Substance: LEVOTHYROXINE SODIUM
     Dosage: 100 UG, 1X/DAY
  10. LYRICA [Suspect]
     Active Substance: PREGABALIN
     Indication: SCOLIOSIS
     Dosage: 50 MG, 3X/DAY
     Dates: start: 20180807, end: 201808
  11. OMEPRAZOL [Concomitant]
     Active Substance: OMEPRAZOLE
     Dosage: 20 MG, 1X/DAY
  12. LYRICA [Suspect]
     Active Substance: PREGABALIN
     Indication: BACK PAIN
     Dosage: 25 MG, 3X/DAY
     Dates: start: 20180731, end: 2018
  13. PREGABALIN NEURAXPHARM [Suspect]
     Active Substance: PREGABALIN
     Dosage: 50 MG, 3X/DAY
     Dates: start: 20180820, end: 20181119

REACTIONS (15)
  - Joint swelling [Unknown]
  - Headache [Unknown]
  - Depression [Unknown]
  - Circulatory collapse [Unknown]
  - Drug ineffective [Unknown]
  - Pain [Unknown]
  - Decreased immune responsiveness [Unknown]
  - Movement disorder [Unknown]
  - Seizure [Unknown]
  - Weight increased [Unknown]
  - Palpitations [Not Recovered/Not Resolved]
  - Musculoskeletal stiffness [Unknown]
  - Pulmonary oedema [Not Recovered/Not Resolved]
  - Dyspnoea [Not Recovered/Not Resolved]
  - Muscle spasms [Unknown]

NARRATIVE: CASE EVENT DATE: 2018
